FAERS Safety Report 18522943 (Version 1)
Quarter: 2020Q4

REPORT INFORMATION
  Report Type: Spontaneous
  Country: US (occurrence: US)
  Receive Date: 20201119
  Receipt Date: 20201119
  Transmission Date: 20210114
  Serious: Yes (Life-Threatening, Hospitalization, Disabling)
  Sender: FDA-Public Use
  Company Number: None

PATIENT
  Age: 33 Year
  Sex: Female
  Weight: 63 kg

DRUGS (2)
  1. AVELOX [Suspect]
     Active Substance: MOXIFLOXACIN HYDROCHLORIDE
     Indication: PNEUMONIA
     Dosage: ?          QUANTITY:3 TABLET(S);?
     Route: 048
  2. LEXAPRO [Concomitant]
     Active Substance: ESCITALOPRAM OXALATE

REACTIONS (8)
  - Mental impairment [None]
  - Toxicity to various agents [None]
  - Insomnia [None]
  - Disability [None]
  - Suicidal ideation [None]
  - Neuropsychiatric symptoms [None]
  - Intentional product use issue [None]
  - Jaw disorder [None]

NARRATIVE: CASE EVENT DATE: 20090801
